FAERS Safety Report 12709448 (Version 2)
Quarter: 2016Q4

REPORT INFORMATION
  Report Type: Spontaneous
  Country: FR (occurrence: FR)
  Receive Date: 20160902
  Receipt Date: 20161017
  Transmission Date: 20170207
  Serious: Yes (Life-Threatening, Hospitalization, Other)
  Sender: FDA-Public Use
  Company Number: FR-SA-2016SA159643

PATIENT
  Age: 74 Year
  Sex: Male
  Weight: 69 kg

DRUGS (1)
  1. FABRAZYME [Suspect]
     Active Substance: AGALSIDASE BETA
     Indication: FABRY^S DISEASE
     Route: 041

REACTIONS (5)
  - Cardiac failure [Recovered/Resolved with Sequelae]
  - Gout [Unknown]
  - Atrioventricular block complete [Unknown]
  - Myocarditis [Unknown]
  - Lung disorder [Unknown]

NARRATIVE: CASE EVENT DATE: 2016
